FAERS Safety Report 8117863-9 (Version None)
Quarter: 2012Q1

REPORT INFORMATION
  Report Type: 
  Country: None (occurrence: None)
  Receive Date: 20120207
  Receipt Date: 20120126
  Transmission Date: 20120608
  Serious: Yes (Hospitalization, Disabling, Other)
  Sender: FDA-Public Use
  Company Number: US-ELI_LILLY_AND_COMPANY-US201111003791

PATIENT
  Age: 22 Year
  Sex: Male

DRUGS (3)
  1. HUMATROPE [Suspect]
     Indication: PITUITARY TUMOUR
     Dosage: 8 MG, QD
     Route: 065
     Dates: start: 20010101
  2. TESTOSTERONE [Concomitant]
     Dosage: UNK, UNKNOWN
     Route: 065
     Dates: start: 20010101
  3. SYNTHROID [Concomitant]
     Dosage: UNK
     Dates: start: 20010101

REACTIONS (8)
  - AMNESIA [None]
  - PITUITARY TUMOUR [None]
  - CEREBROVASCULAR ACCIDENT [None]
  - ROAD TRAFFIC ACCIDENT [None]
  - LIMB INJURY [None]
  - HYPERTENSION [None]
  - HYPOVITAMINOSIS [None]
  - SKULL FRACTURE [None]
